FAERS Safety Report 6761342-8 (Version None)
Quarter: 2010Q2

REPORT INFORMATION
  Report Type: 
  Country: None (occurrence: None)
  Receive Date: 20100608
  Receipt Date: 20100602
  Transmission Date: 20101027
  Serious: Yes (Life-Threatening, Hospitalization)
  Sender: FDA-Public Use
  Company Number: FR-MERCK-1006FRA00022

PATIENT
  Age: 56 Year
  Sex: Female

DRUGS (6)
  1. JANUVIA [Suspect]
     Indication: INSULIN-REQUIRING TYPE 2 DIABETES MELLITUS
     Route: 048
     Dates: start: 20100326, end: 20100410
  2. KARDEGIC [Concomitant]
     Indication: PROPHYLAXIS
     Route: 048
     Dates: start: 20091201
  3. LANTUS [Suspect]
     Indication: INSULIN-REQUIRING TYPE 2 DIABETES MELLITUS
     Route: 058
     Dates: start: 20100226, end: 20100410
  4. IMOVANE [Concomitant]
     Indication: INSOMNIA
     Route: 048
  5. DEPAKENE [Concomitant]
     Indication: EPILEPSY
     Route: 048
  6. LERCAN [Concomitant]
     Indication: HYPERTENSION
     Route: 048

REACTIONS (1)
  - HYPOGLYCAEMIC COMA [None]
